FAERS Safety Report 6546759-9 (Version None)
Quarter: 2010Q1

REPORT INFORMATION
  Report Type: 
  Country: None (occurrence: None)
  Receive Date: 20100120
  Receipt Date: 20100104
  Transmission Date: 20100710
  Serious: Yes (Disabling)
  Sender: FDA-Public Use
  Company Number: 2010AL000161

PATIENT

DRUGS (1)
  1. METOCLOPRAMIDE [Suspect]
     Dosage: PO
     Route: 048

REACTIONS (7)
  - DECREASED ACTIVITY [None]
  - DEFORMITY [None]
  - DYSKINESIA [None]
  - EXTRAPYRAMIDAL DISORDER [None]
  - MULTIPLE INJURIES [None]
  - NERVOUS SYSTEM DISORDER [None]
  - PAIN [None]
